FAERS Safety Report 7674058 (Version 4)
Quarter: 2013Q1

REPORT INFORMATION
  Report Type: Report from Study
  Country: US (occurrence: US)
  Receive Date: 20101118
  Receipt Date: 20130222
  Transmission Date: 20140127
  Serious: Yes (Hospitalization)
  Sender: FDA-Public Use
  Company Number: US-ROCHE-732559

PATIENT
  Age: 71 None
  Sex: Female
  Weight: 67.1 kg

DRUGS (14)
  1. BEVACIZUMAB [Suspect]
     Indication: NON-SMALL CELL LUNG CANCER
     Route: 042
     Dates: start: 20100820, end: 20100929
  2. PEMETREXED [Suspect]
     Indication: NON-SMALL CELL LUNG CANCER
     Route: 042
     Dates: start: 20100818, end: 20101027
  3. CARBOPLATIN [Suspect]
     Indication: NON-SMALL CELL LUNG CANCER
     Dosage: DOSE:AUC OF 6
     Route: 065
     Dates: start: 20100818, end: 20101027
  4. TYLENOL [Concomitant]
     Indication: PAIN
     Dosage: FREQUENCY:PRN
     Route: 048
  5. DECADRON [Concomitant]
     Route: 065
  6. CRESTOR [Concomitant]
     Indication: HYPERLIPIDAEMIA
     Route: 048
  7. CENTRUM SILVER [Concomitant]
     Indication: HYPERTENSION
     Route: 048
  8. NORVASC [Concomitant]
     Indication: HYPERTENSION
     Route: 048
  9. KLONOPIN [Concomitant]
     Route: 048
  10. HYDROMORPHONE [Concomitant]
     Indication: PAIN
     Dosage: PRN
     Route: 048
  11. FOLIC ACID [Concomitant]
  12. VITAMIN B12 [Concomitant]
  13. DEXAMETHASONE [Concomitant]
  14. ASPIRIN [Concomitant]

REACTIONS (5)
  - Vomiting [Unknown]
  - Dehydration [Unknown]
  - Spinal disorder [Not Recovered/Not Resolved]
  - Pulmonary embolism [Recovered/Resolved]
  - Cerebrovascular accident [Recovered/Resolved]
